FAERS Safety Report 9689577 (Version 2)
Quarter: 2013Q4

REPORT INFORMATION
  Report Type: Spontaneous
  Country: US (occurrence: US)
  Receive Date: 20131115
  Receipt Date: 20131115
  Transmission Date: 20140711
  Serious: Yes (Other)
  Sender: FDA-Public Use
  Company Number: US-JNJFOC-20131016596

PATIENT
  Age: 12 Month
  Sex: Female
  Weight: 11.34 kg

DRUGS (3)
  1. TYLENOL CHILD GRAPE SPLASH [Suspect]
     Route: 048
  2. TYLENOL CHILD GRAPE SPLASH [Suspect]
     Indication: PYREXIA
     Route: 048
     Dates: start: 20131025, end: 20131025
  3. MOTRIN [Concomitant]
     Indication: PYREXIA
     Route: 065

REACTIONS (2)
  - Product contamination physical [Unknown]
  - Choking [Recovered/Resolved]
